FAERS Safety Report 7728441-5 (Version None)
Quarter: 2011Q3

REPORT INFORMATION
  Report Type: 
  Country: None (occurrence: None)
  Receive Date: 20110905
  Receipt Date: 20110826
  Transmission Date: 20111222
  Serious: Yes (Other)
  Sender: FDA-Public Use
  Company Number: PHEH2010US03488

PATIENT
  Sex: Female

DRUGS (9)
  1. PAMIDRONATE DISODIUM [Suspect]
  2. PANTOPRAZOLE [Concomitant]
  3. MORPHINE [Concomitant]
  4. RANITIDINE [Concomitant]
  5. TYLENOL-500 [Concomitant]
  6. AREDIA [Suspect]
  7. CLARITHROMYCIN [Concomitant]
  8. AMOXICILLIN [Concomitant]
  9. PEPCID [Concomitant]

REACTIONS (20)
  - DISABILITY [None]
  - PAIN [None]
  - HIATUS HERNIA [None]
  - DIVERTICULUM [None]
  - OSTEONECROSIS OF JAW [None]
  - ANHEDONIA [None]
  - HAEMATEMESIS [None]
  - ESSENTIAL HYPERTENSION [None]
  - ARTHRALGIA [None]
  - PEPTIC ULCER [None]
  - GASTRITIS [None]
  - ARTHRITIS [None]
  - GENERAL PHYSICAL HEALTH DETERIORATION [None]
  - UPPER GASTROINTESTINAL HAEMORRHAGE [None]
  - DYSPNOEA [None]
  - ANXIETY [None]
  - INJURY [None]
  - DYSPEPSIA [None]
  - HELICOBACTER INFECTION [None]
  - CONSTIPATION [None]
